FAERS Safety Report 16016675 (Version 3)
Quarter: 2019Q4

REPORT INFORMATION
  Report Type: Report from Study
  Country: US (occurrence: US)
  Receive Date: 20190228
  Receipt Date: 20191127
  Transmission Date: 20200122
  Serious: Yes (Hospitalization)
  Sender: FDA-Public Use
  Company Number: US-ROCHE-2266995

PATIENT
  Age: 46 Year
  Sex: Male
  Weight: 81 kg

DRUGS (6)
  1. BEVACIZUMAB. [Suspect]
     Active Substance: BEVACIZUMAB
     Indication: ADENOCARCINOMA OF COLON
     Dosage: FORTNIGHTY
     Route: 042
     Dates: start: 20180817
  2. IRINOTECAN [Suspect]
     Active Substance: IRINOTECAN
     Indication: ADENOCARCINOMA OF COLON
     Dosage: FORTNIGHTY
     Route: 042
     Dates: start: 20180817
  3. LEUCOVORIN [FOLINIC ACID] [Suspect]
     Active Substance: LEUCOVORIN
     Indication: ADENOCARCINOMA OF COLON
     Dosage: FORTNIGHTY
     Route: 042
     Dates: start: 20190817
  4. 5-FLUOROURACIL [FLUOROURACIL] [Suspect]
     Active Substance: FLUOROURACIL
     Dosage: FORTNIGHTY
     Route: 042
     Dates: start: 20180817
  5. NAPABUCASIN [Suspect]
     Active Substance: NAPABUCASIN
     Indication: COLON CANCER STAGE IV
     Route: 048
     Dates: start: 20180817
  6. 5-FLUOROURACIL [FLUOROURACIL] [Suspect]
     Active Substance: FLUOROURACIL
     Indication: COLON CANCER STAGE IV
     Dosage: FORTNIGHTY
     Route: 040
     Dates: start: 20180817, end: 20180906

REACTIONS (2)
  - Melaena [Unknown]
  - Anaemia [Unknown]

NARRATIVE: CASE EVENT DATE: 20190124
